FAERS Safety Report 16264512 (Version 2)
Quarter: 2019Q2

REPORT INFORMATION
  Report Type: Spontaneous
  Country: US (occurrence: US)
  Receive Date: 20190502
  Receipt Date: 20190516
  Transmission Date: 20190711
  Serious: No
  Sender: FDA-Public Use
  Company Number: US-JNJFOC-20190413715

PATIENT
  Age: 55 Year
  Sex: Female
  Weight: 56.7 kg

DRUGS (4)
  1. BIOTIN [Concomitant]
     Active Substance: BIOTIN
     Indication: PRODUCT USED FOR UNKNOWN INDICATION
     Route: 065
  2. MULTI VITAMIN [Concomitant]
     Active Substance: VITAMINS
     Indication: PRODUCT USED FOR UNKNOWN INDICATION
     Route: 065
  3. WOMENS ROGAINE UNSCENTED [Suspect]
     Active Substance: MINOXIDIL
     Route: 061
  4. WOMENS ROGAINE UNSCENTED [Suspect]
     Active Substance: MINOXIDIL
     Indication: ALOPECIA
     Dosage: 1/2 CAPFUL
     Route: 061
     Dates: start: 20190330, end: 20190403

REACTIONS (5)
  - Migraine [Recovering/Resolving]
  - Palpitations [Recovered/Resolved]
  - Vision blurred [Recovering/Resolving]
  - Visual impairment [Recovering/Resolving]
  - Headache [Recovering/Resolving]

NARRATIVE: CASE EVENT DATE: 20190330
